FAERS Safety Report 16647454 (Version 1)
Quarter: 2019Q3

REPORT INFORMATION
  Report Type: Spontaneous
  Country: JP (occurrence: JP)
  Receive Date: 20190730
  Receipt Date: 20190730
  Transmission Date: 20191004
  Serious: Yes (Death, Other)
  Sender: FDA-Public Use
  Company Number: JP-COLLEGIUM PHARMACEUTICAL, INC.-JP-2019COL000890

PATIENT

DRUGS (1)
  1. TAPENTADOL EXTENDED RELEASE [Suspect]
     Active Substance: TAPENTADOL
     Indication: CANCER PAIN
     Dosage: UNK
     Route: 048

REACTIONS (5)
  - Dysphagia [Unknown]
  - Ileus [Unknown]
  - Death [Fatal]
  - Somnolence [Unknown]
  - Overdose [Unknown]
